FAERS Safety Report 14491627 (Version 2)
Quarter: 2018Q1

REPORT INFORMATION
  Report Type: Spontaneous
  Country: US (occurrence: US)
  Receive Date: 20180206
  Receipt Date: 20180322
  Transmission Date: 20180509
  Serious: No
  Sender: FDA-Public Use
  Company Number: US-GLAXOSMITHKLINE-US2018018520

PATIENT
  Sex: Female

DRUGS (12)
  1. ADVAIR DISKUS [Suspect]
     Active Substance: FLUTICASONE PROPIONATE\SALMETEROL XINAFOATE
     Indication: CHRONIC OBSTRUCTIVE PULMONARY DISEASE
     Dosage: 1 PUFF(S), BID
     Route: 055
  2. FUROSEMIDE. [Concomitant]
     Active Substance: FUROSEMIDE
  3. AMLODIPINE [Concomitant]
     Active Substance: AMLODIPINE BESYLATE
  4. VITAMIN B12 [Concomitant]
     Active Substance: CYANOCOBALAMIN
  5. LOSARTAN. [Concomitant]
     Active Substance: LOSARTAN
  6. SINGULAIR [Concomitant]
     Active Substance: MONTELUKAST SODIUM
  7. OMEPRAZOLE. [Concomitant]
     Active Substance: OMEPRAZOLE
  8. IMDUR [Concomitant]
     Active Substance: ISOSORBIDE MONONITRATE
  9. ZANTAC [Concomitant]
     Active Substance: RANITIDINE HYDROCHLORIDE
  10. LIPITOR [Concomitant]
     Active Substance: ATORVASTATIN CALCIUM
  11. METOPROLOL. [Concomitant]
     Active Substance: METOPROLOL
  12. NITROSTAT [Concomitant]
     Active Substance: NITROGLYCERIN

REACTIONS (4)
  - Drug ineffective [Recovered/Resolved]
  - Product quality issue [Unknown]
  - Dyspnoea [Recovered/Resolved]
  - Cough [Recovered/Resolved]
